FAERS Safety Report 5383885-4 (Version None)
Quarter: 2007Q3

REPORT INFORMATION
  Report Type: 
  Country: None (occurrence: None)
  Receive Date: 20070711
  Receipt Date: 20070705
  Transmission Date: 20080115
  Serious: Yes (Other)
  Sender: FDA-Public Use
  Company Number: GB-NOVOPROD-265254

PATIENT
  Sex: Female

DRUGS (1)
  1. NOVOSEVEN [Suspect]
     Indication: POSTPARTUM HAEMORRHAGE

REACTIONS (1)
  - POSTPARTUM VENOUS THROMBOSIS [None]
